FAERS Safety Report 8762464 (Version 1)
Quarter: 2012Q4

REPORT INFORMATION
  Report Type: 
  Country: FR (occurrence: FR)
  Receive Date: 20120830
  Receipt Date: 20120830
  Transmission Date: 20130627
  Serious: Yes (Other)
  Sender: FDA-Public Use
  Company Number: FR-ASTRAZENECA-2012SE60721

PATIENT
  Sex: Male

DRUGS (11)
  1. DIPRIVAN [Suspect]
     Indication: GENERAL ANAESTHESIA
     Route: 042
     Dates: start: 20111115
  2. SUFENTA [Suspect]
     Indication: GENERAL ANAESTHESIA
     Route: 042
     Dates: start: 20111115
  3. AUGMENTIN [Suspect]
     Indication: TOOTH EXTRACTION
     Route: 042
     Dates: start: 20111115
  4. SOLUMEDROL(METHYLPREDNISOLONE SODIUM SUCCINATE) INFUSION [Suspect]
     Indication: TOOTH EXTRACTION
     Route: 042
     Dates: start: 20111115
  5. SEVOFLURAN [Concomitant]
  6. SYMBICORT TBH [Concomitant]
     Indication: ASTHMA
     Dosage: morning and evening
     Route: 055
     Dates: start: 2011
  7. INIPOMP [Concomitant]
     Indication: GASTROOESOPHAGEAL REFLUX DISEASE
     Route: 048
  8. AIROMIR [Concomitant]
     Indication: ANXIETY
     Dosage: As required
  9. XYZAL [Concomitant]
     Indication: CONJUNCTIVITIS ALLERGIC
  10. NASONEX [Concomitant]
     Indication: CONJUNCTIVITIS ALLERGIC
  11. OPTICRON [Concomitant]
     Indication: CONJUNCTIVITIS ALLERGIC

REACTIONS (2)
  - Anaphylactic reaction [Recovered/Resolved]
  - Skin test negative [Unknown]
